FAERS Safety Report 6317063-9 (Version None)
Quarter: 2009Q3

REPORT INFORMATION
  Report Type: 
  Country: None (occurrence: None)
  Receive Date: 20090820
  Receipt Date: 20090810
  Transmission Date: 20100115
  Serious: Yes (Other)
  Sender: FDA-Public Use
  Company Number: US-PFIZER INC-2009253212

PATIENT
  Sex: Female
  Weight: 69.388 kg

DRUGS (5)
  1. XANAX [Suspect]
     Indication: EX-TOBACCO USER
     Dates: start: 20090101
  2. NICOTINE [Concomitant]
  3. BUSPAR [Concomitant]
     Dosage: UNK
     Dates: end: 20090101
  4. ZYBAN [Concomitant]
  5. WELLBUTRIN [Concomitant]

REACTIONS (8)
  - ARTERIAL DISORDER [None]
  - CATARACT [None]
  - DIZZINESS [None]
  - DRUG EFFECT DECREASED [None]
  - FALL [None]
  - JOINT INJURY [None]
  - MEDICATION ERROR [None]
  - NERVOUSNESS [None]
